FAERS Safety Report 20035050 (Version 3)
Quarter: 2022Q4

REPORT INFORMATION
  Report Type: Spontaneous
  Country: DE (occurrence: DE)
  Receive Date: 20211104
  Receipt Date: 20221214
  Transmission Date: 20230112
  Serious: Yes (Hospitalization)
  Sender: FDA-Public Use
  Company Number: DE-ADRED-06978-01

PATIENT
  Age: 68 Year
  Sex: Male
  Weight: 67 kg

DRUGS (15)
  1. RISPERIDONE [Suspect]
     Active Substance: RISPERIDONE
     Indication: Product used for unknown indication
     Dosage: 1 MG, 0-0-1-0
     Route: 065
  2. OLANZAPINE [Suspect]
     Active Substance: OLANZAPINE
     Indication: Product used for unknown indication
     Dosage: 10 MG, 1-0-2-0
     Route: 065
  3. TORSEMIDE [Suspect]
     Active Substance: TORSEMIDE
     Indication: Product used for unknown indication
     Dosage: 10 MG, 1-0-0-0
     Route: 065
  4. VALPROATE SODIUM [Suspect]
     Active Substance: VALPROATE SODIUM
     Indication: Product used for unknown indication
     Dosage: 500 MG, 0-0-1-0, RETARD
     Route: 065
  5. VALPROATE SODIUM [Suspect]
     Active Substance: VALPROATE SODIUM
     Indication: Product used for unknown indication
     Dosage: 300 MG, 1-0-0-0, RETARD
     Route: 065
  6. FOLIC ACID [Concomitant]
     Active Substance: FOLIC ACID
     Dosage: 5 MG, 1-0-0-0
     Route: 065
  7. SODIUM PICOSULFATE [Concomitant]
     Active Substance: SODIUM PICOSULFATE
     Dosage: 7.5 MG,  REQUIREMENT
     Route: 065
  8. BIPERIDEN [Concomitant]
     Active Substance: BIPERIDEN
     Dosage: 2 MG, 0-1-0-0
     Route: 065
  9. BIPERIDEN [Concomitant]
     Active Substance: BIPERIDEN
     Dosage: 4 MG, 1-0.5-0-0
     Route: 065
  10. CHOLECALCIFEROL [Concomitant]
     Active Substance: CHOLECALCIFEROL
     Dosage: 1000 IU / TAG, 25-0-0-0
     Route: 065
  11. LORAZEPAM [Concomitant]
     Active Substance: LORAZEPAM
     Dosage: 1 MG, 1-0-1-0
     Route: 065
  12. LORAZEPAM [Concomitant]
     Active Substance: LORAZEPAM
     Dosage: 0.5 MILLIGRAM, REQUIREMENT
     Route: 065
  13. LACTULOSE [Concomitant]
     Active Substance: LACTULOSE
     Dosage: 5 ML, 1-0-0-0
     Route: 065
  14. METHIONINE [Concomitant]
     Active Substance: METHIONINE
     Dosage: 500 MG, 1-0-1-0
     Route: 065
  15. MACROGOL 4000;POTASSIUM CHLORIDE;SODIUM BICARBONATE;SODIUM CHLORIDE [Concomitant]
     Dosage: 1-1-0-0
     Route: 065

REACTIONS (23)
  - General physical health deterioration [Unknown]
  - Abdominal distension [Unknown]
  - Renal impairment [Unknown]
  - Schizophrenia [Unknown]
  - Condition aggravated [Unknown]
  - Paraplegia [Unknown]
  - Aphasia [Unknown]
  - Hyponatraemia [Unknown]
  - Gaze palsy [Unknown]
  - Electrolyte imbalance [Unknown]
  - Oedema peripheral [Unknown]
  - Depressed level of consciousness [Unknown]
  - Pyrexia [Unknown]
  - Faecaloma [Unknown]
  - Abdominal pain [Unknown]
  - Diarrhoea [Unknown]
  - Vomiting [Unknown]
  - Anaemia [Unknown]
  - Tachycardia [Unknown]
  - Tremor [Unknown]
  - Constipation [Unknown]
  - Systemic infection [Unknown]
  - Infection [Unknown]
